FAERS Safety Report 20828425 (Version 1)
Quarter: 2022Q2

REPORT INFORMATION
  Report Type: Report from Study
  Country: DE (occurrence: DE)
  Receive Date: 20220513
  Receipt Date: 20220513
  Transmission Date: 20220721
  Serious: Yes (Other)
  Sender: FDA-Public Use
  Company Number: DE-ROCHE-2400367

PATIENT
  Age: 59 Year
  Sex: Male
  Weight: 92.8 kg

DRUGS (24)
  1. METHOTREXATE SODIUM [Suspect]
     Active Substance: METHOTREXATE SODIUM
     Indication: Diffuse large B-cell lymphoma
     Dosage: UNK UNK, CYCLIC (AT 1ST LINE, R-CHOP 6 CYCLES)
     Dates: start: 200706, end: 200710
  2. CYCLOPHOSPHAMIDE [Suspect]
     Active Substance: CYCLOPHOSPHAMIDE
     Indication: Diffuse large B-cell lymphoma
     Dosage: UNK UNK, CYCLIC, 1ST LINE, R-CHOP 6 CYCLES
     Dates: start: 200706, end: 200710
  3. AZATHIOPRINE [Suspect]
     Active Substance: AZATHIOPRINE
     Indication: Diffuse large B-cell lymphoma
     Dosage: UNK UNK, CYCLIC (AT 1ST LINE, R-CHOP 6 CYCLES 1ST LINE, R-CHOP 6 CYCLES)
     Dates: start: 200706, end: 200710
  4. RITUXIMAB [Suspect]
     Active Substance: RITUXIMAB
     Indication: Diffuse large B-cell lymphoma
     Dosage: UNK UNK, CYCLIC 1ST LINE, R-CHOP 6 CYCLES
     Dates: start: 200706, end: 200710
  5. RITUXIMAB [Suspect]
     Active Substance: RITUXIMAB
     Dosage: UNK UNK, CYCLIC R-DHA+OXALIPLATINE 1 CYCLE
     Dates: start: 201906, end: 201906
  6. RITUXIMAB [Suspect]
     Active Substance: RITUXIMAB
     Dosage: UNK UNK, CYCLIC  R-DHAP 1 CYCLE
     Dates: start: 201905, end: 201905
  7. RITUXIMAB [Suspect]
     Active Substance: RITUXIMAB
     Dosage: UNK UNK, CYCLIC 2ND LINE, R-BENDAMUSTINE 6 CYCLES
     Dates: start: 201406, end: 201410
  8. RITUXIMAB [Suspect]
     Active Substance: RITUXIMAB
     Dosage: UNK UNK, CYCLIC  FURTHER LINES, OBINUTUZUMAB+BENDAMUSTINE 6 CYCLES
     Dates: start: 201810, end: 201903
  9. THALIDOMIDE [Suspect]
     Active Substance: THALIDOMIDE
     Indication: Diffuse large B-cell lymphoma
     Dosage: UNK UNK, CYCLIC 1ST LINE, R-CHOP 6 CYCLES
     Dates: start: 200706, end: 200710
  10. BENDAMUSTINE [Suspect]
     Active Substance: BENDAMUSTINE
     Indication: Diffuse large B-cell lymphoma
     Dosage: UNK UNK, CYCLIC (2ND LINE, R-BENDAMUSTINE 6 CYCLES)
     Dates: start: 200706, end: 200710
  11. BENDAMUSTINE [Suspect]
     Active Substance: BENDAMUSTINE
     Dosage: UNK UNK, CYCLIC (2ND LINE, R-BENDAMUSTINE 6 CYCLES)
     Dates: start: 201406, end: 201410
  12. BENDAMUSTINE [Suspect]
     Active Substance: BENDAMUSTINE
     Dosage: UNK
     Dates: start: 201810, end: 201903
  13. POLATUZUMAB VEDOTIN [Suspect]
     Active Substance: POLATUZUMAB VEDOTIN
     Indication: Diffuse large B-cell lymphoma
     Dosage: UNK UNK, CYCLIC 1ST LINE, R-CHOP 6 CYCLES
     Dates: start: 200706, end: 200710
  14. DEXAMETHASONE [Suspect]
     Active Substance: DEXAMETHASONE
     Indication: Diffuse large B-cell lymphoma
     Dosage: UNK UNK, CYCLIC 1ST LINE, R-CHOP 6 CYCLES
     Dates: start: 200706, end: 200710
  15. DEXAMETHASONE [Suspect]
     Active Substance: DEXAMETHASONE
     Dosage: R-DHAP, ONE CYCLE
     Route: 065
     Dates: start: 201905, end: 201905
  16. DEXAMETHASONE [Suspect]
     Active Substance: DEXAMETHASONE
     Dosage: R-DHA+OXALIPLATINE, ONE CYCLE
     Dates: start: 201906, end: 201906
  17. CYTARABINE [Suspect]
     Active Substance: CYTARABINE
     Indication: Diffuse large B-cell lymphoma
     Dosage: R-DHAP, ONE CYCLE
     Dates: start: 201905, end: 201905
  18. CYTARABINE [Suspect]
     Active Substance: CYTARABINE
     Dosage: R-DHA+OXALIPLATINE, ONE CYCLE
     Dates: start: 201906, end: 201906
  19. OBINUTUZUMAB [Suspect]
     Active Substance: OBINUTUZUMAB
     Dosage: OBINUTUZUMAB+BENDAMUSTINE, SIX CYCLES
     Route: 042
     Dates: start: 201810, end: 201903
  20. PREDNISONE [Suspect]
     Active Substance: PREDNISONE
     Indication: Diffuse large B-cell lymphoma
     Dosage: 1ST LINE, R-CHOP 6 CYCLES
     Dates: start: 200706, end: 200710
  21. DOXORUBICIN [Suspect]
     Active Substance: DOXORUBICIN
     Indication: Diffuse large B-cell lymphoma
     Dosage: 1ST LINE, R-CHOP 6 CYCLES
     Dates: start: 200706, end: 200710
  22. CISPLATIN [Suspect]
     Active Substance: CISPLATIN
     Indication: Diffuse large B-cell lymphoma
     Dosage: R-DHAP, ONE CYCLE
     Dates: start: 201905, end: 201905
  23. VINCRISTINE [Suspect]
     Active Substance: VINCRISTINE
     Dosage: 1ST LINE, R-CHOP 6 CYCLES
     Dates: start: 200706, end: 200710
  24. OXALIPLATIN [Suspect]
     Active Substance: OXALIPLATIN
     Indication: Diffuse large B-cell lymphoma
     Dosage: R-DHA+OXALIPLATINE, ONE CYCLE
     Dates: start: 201906, end: 201906

REACTIONS (7)
  - Haemoglobin decreased [Unknown]
  - Platelet count decreased [Unknown]
  - Neutrophil count increased [Unknown]
  - Renal injury [Unknown]
  - White blood cell count increased [Unknown]
  - Blood creatinine increased [Unknown]
  - Aspartate aminotransferase increased [Unknown]

NARRATIVE: CASE EVENT DATE: 20190627
